FAERS Safety Report 10314285 (Version 5)
Quarter: 2014Q3

REPORT INFORMATION
  Report Type: Report from Study
  Country: US (occurrence: US)
  Receive Date: 20140718
  Receipt Date: 20140828
  Transmission Date: 20150326
  Serious: Yes (Life-Threatening, Hospitalization)
  Sender: FDA-Public Use
  Company Number: US-GLAXOSMITHKLINE-A1081442A

PATIENT
  Age: 8 Year
  Sex: Male
  Weight: 23.9 kg

DRUGS (8)
  1. NELARABINE [Suspect]
     Active Substance: NELARABINE
     Indication: T-CELL TYPE ACUTE LEUKAEMIA
     Dosage: 650MGM2 CYCLIC
     Route: 042
     Dates: start: 20140705
  2. PEG/L-ASPARAGINASE [Suspect]
     Active Substance: PEGASPARGASE
     Indication: T-CELL TYPE ACUTE LEUKAEMIA
     Route: 030
     Dates: start: 20140606
  3. DAUNORUBICIN [Suspect]
     Active Substance: DAUNORUBICIN
     Indication: T-CELL TYPE ACUTE LEUKAEMIA
     Dates: start: 20140606
  4. CYTARABINE. [Suspect]
     Active Substance: CYTARABINE
     Indication: T-CELL TYPE ACUTE LEUKAEMIA
     Dosage: 75MGM2 CYCLIC
     Route: 042
     Dates: start: 20140606
  5. RADIATION [Concomitant]
     Active Substance: RADIATION THERAPY
     Indication: T-CELL TYPE ACUTE LEUKAEMIA
  6. VINCRISTINE [Suspect]
     Active Substance: VINCRISTINE
     Indication: T-CELL TYPE ACUTE LEUKAEMIA
     Dosage: 1.5MGM2 CYCLIC
     Route: 042
     Dates: start: 20140606
  7. PREDNISONE. [Suspect]
     Active Substance: PREDNISONE
     Indication: T-CELL TYPE ACUTE LEUKAEMIA
  8. METHOTREXATE [Suspect]
     Active Substance: METHOTREXATE
     Indication: T-CELL TYPE ACUTE LEUKAEMIA
     Route: 037
     Dates: start: 20140606

REACTIONS (16)
  - Hyponatraemia [Unknown]
  - Pain in extremity [Unknown]
  - Anxiety [Unknown]
  - Posterior reversible encephalopathy syndrome [Unknown]
  - Abdominal pain [Unknown]
  - Hypocalcaemia [Unknown]
  - Paraesthesia [Unknown]
  - Depressed level of consciousness [Unknown]
  - Confusional state [Unknown]
  - Sepsis [Unknown]
  - Upper gastrointestinal haemorrhage [Unknown]
  - Peripheral motor neuropathy [Unknown]
  - Renal failure acute [Unknown]
  - Encephalopathy [Unknown]
  - Agitation [Unknown]
  - Respiratory failure [Unknown]

NARRATIVE: CASE EVENT DATE: 20140705
